FAERS Safety Report 17535490 (Version 1)
Quarter: 2020Q1

REPORT INFORMATION
  Report Type: Spontaneous
  Country: GB (occurrence: GB)
  Receive Date: 20200312
  Receipt Date: 20200312
  Transmission Date: 20200409
  Serious: Yes (Hospitalization, Other)
  Sender: FDA-Public Use
  Company Number: NVSC2020GB063937

PATIENT

DRUGS (2)
  1. IMATINIB. [Suspect]
     Active Substance: IMATINIB MESYLATE
     Indication: PRODUCT USED FOR UNKNOWN INDICATION
     Dosage: 400 MG, QD
     Route: 065
  2. IMATINIB. [Suspect]
     Active Substance: IMATINIB MESYLATE
     Dosage: 300 MG, QD
     Route: 065

REACTIONS (9)
  - Myalgia [Unknown]
  - Muscle spasms [Unknown]
  - Dyspnoea [Unknown]
  - Transaminases increased [Recovered/Resolved]
  - Diarrhoea [Unknown]
  - Renal impairment [Unknown]
  - Abdominal pain [Unknown]
  - Reflux gastritis [Recovering/Resolving]
  - Drug ineffective [Unknown]
